FAERS Safety Report 11088953 (Version 1)
Quarter: 2015Q2

REPORT INFORMATION
  Report Type: Spontaneous
  Country: US (occurrence: US)
  Receive Date: 20150504
  Receipt Date: 20150504
  Transmission Date: 20150821
  Serious: Yes (Hospitalization, Other)
  Sender: FDA-Public Use
  Company Number: US-AMGEN-USASP2015042094

PATIENT
  Age: 54 Year
  Sex: Female

DRUGS (2)
  1. ENBREL [Suspect]
     Active Substance: ETANERCEPT
     Indication: RHEUMATOID ARTHRITIS
     Dosage: 50 MG, QWK
     Route: 065
     Dates: start: 20120123
  2. METHOTREXATE [Concomitant]
     Active Substance: METHOTREXATE
     Dosage: INSULIN SYRINGE USED  TAKES TO 50 UNIT LINE  ONCE WEEKLY

REACTIONS (17)
  - Postoperative wound infection [Recovered/Resolved]
  - Depressed mood [Recovered/Resolved]
  - Feeling abnormal [Unknown]
  - Crying [Recovered/Resolved]
  - Osteomyelitis bacterial [Recovered/Resolved]
  - Neoplasm malignant [Recovered/Resolved]
  - Arthralgia [Not Recovered/Not Resolved]
  - Mobility decreased [Not Recovered/Not Resolved]
  - Hysterectomy [Recovered/Resolved]
  - Oophorectomy [Recovered/Resolved]
  - Menorrhagia [Recovered/Resolved]
  - Abdominal distension [Unknown]
  - Cystopexy [Recovered/Resolved]
  - Osteomyelitis [Unknown]
  - Dysmenorrhoea [Recovered/Resolved]
  - Abdominal pain [Unknown]
  - Walking aid user [Not Recovered/Not Resolved]

NARRATIVE: CASE EVENT DATE: 2012
